FAERS Safety Report 8183628-5 (Version None)
Quarter: 2012Q1

REPORT INFORMATION
  Report Type: 
  Country: None (occurrence: None)
  Receive Date: 20120202
  Receipt Date: 20110930
  Transmission Date: 20120608
  Serious: Yes (Other)
  Sender: FDA-Public Use
  Company Number: KAD201110-000026

PATIENT
  Age: 60 Year
  Sex: Female
  Weight: 57 kg

DRUGS (7)
  1. INCIVEK [Suspect]
     Indication: HEPATITIS C
     Dosage: 375 MG (2 TABLETS EVERY 8 HOURS), ORAL
     Route: 048
     Dates: start: 20110904
  2. LOTENSIN [Concomitant]
  3. SYNTHROID [Concomitant]
  4. PEGASYS [Suspect]
     Indication: HEPATITIS C
     Dosage: 180 MCG WEEKLY, SUBCUTANEOUS
     Route: 058
     Dates: start: 20110904
  5. FOSAMAX [Concomitant]
  6. ASPIRIN [Concomitant]
  7. RIBAVIRIN [Suspect]
     Indication: HEPATITIS C
     Dosage: 800 MG, ORAL 600 MG, ORAL 400 MG, ORAL
     Route: 048
     Dates: start: 20110904

REACTIONS (1)
  - ANAEMIA [None]
